FAERS Safety Report 25947832 (Version 1)
Quarter: 2025Q4

REPORT INFORMATION
  Report Type: Spontaneous
  Country: TW (occurrence: TW)
  Receive Date: 20251022
  Receipt Date: 20251022
  Transmission Date: 20260117
  Serious: Yes (Other)
  Sender: JOHNSON AND JOHNSON
  Company Number: TW-MTPC-MTPC2025-0018688

PATIENT
  Age: 37 Year
  Sex: Male

DRUGS (1)
  1. REMICADE [Suspect]
     Active Substance: INFLIXIMAB
     Indication: Crohn^s disease
     Dosage: 300 MG, LOADING DOSE 0/2/6 WEEKS THEN EVERY 8 WEEKS
     Route: 041
     Dates: start: 20180510, end: 20250815

REACTIONS (3)
  - Large intestinal obstruction [Not Recovered/Not Resolved]
  - Post procedural inflammation [Not Recovered/Not Resolved]
  - Drug ineffective [Unknown]

NARRATIVE: CASE EVENT DATE: 20251015
